FAERS Safety Report 5011072-8 (Version None)
Quarter: 2006Q2

REPORT INFORMATION
  Report Type: 
  Country: None (occurrence: None)
  Receive Date: 20060523
  Receipt Date: 20060516
  Transmission Date: 20061013
  Serious: Yes (Life-Threatening)
  Sender: FDA-Public Use
  Company Number: 2006US001008

PATIENT
  Age: 68 Year
  Sex: Female

DRUGS (9)
  1. AMBISOME [Suspect]
     Indication: SYSTEMIC CANDIDA
     Dosage: 1 MG, IV NOS
     Route: 042
     Dates: start: 20060416, end: 20060416
  2. PANTOPRAZOLE [Concomitant]
  3. HYDROCORTISONE (HYDROCORTISONE HYDROGEN SUCCINATE) [Concomitant]
  4. SALBUTAMOL (SALBUTAMOL SULFATE) [Concomitant]
  5. IPRATROPIUM BROMIDE [Concomitant]
  6. SIMVASTATIN [Concomitant]
  7. AUGMENTIN (AMOXICILLIN SODIUM) [Concomitant]
  8. DALTEPARIN [Concomitant]
  9. FUROSEMIDE [Concomitant]

REACTIONS (3)
  - ELECTROCARDIOGRAM T WAVE INVERSION [None]
  - HYPOTENSION [None]
  - TACHYCARDIA [None]
